FAERS Safety Report 22392893 (Version 1)
Quarter: 2023Q2

REPORT INFORMATION
  Report Type: Spontaneous
  Country: DE (occurrence: DE)
  Receive Date: 20230601
  Receipt Date: 20230601
  Transmission Date: 20230722
  Serious: Yes (Other)
  Sender: FDA-Public Use
  Company Number: DE-DCGMA-23200612

PATIENT
  Age: 29 Year
  Sex: Male
  Weight: 65 kg

DRUGS (3)
  1. CIPROFLOXACIN HYDROCHLORIDE [Suspect]
     Active Substance: CIPROFLOXACIN HYDROCHLORIDE
     Indication: Salmonellosis
     Dosage: 500 MILLIGRAM
     Route: 065
     Dates: start: 202202
  2. OFLOXACIN [Suspect]
     Active Substance: OFLOXACIN
     Indication: Salmonellosis
     Dosage: 400 MILLIGRAM, 2 X 200 MG
     Route: 065
     Dates: start: 202201
  3. CIPROFLOXACIN [Suspect]
     Active Substance: CIPROFLOXACIN
     Indication: Salmonellosis
     Dosage: 1000 MILLIGRAM, 2 X 500 MG
     Route: 065
     Dates: start: 202201

REACTIONS (4)
  - Muscular weakness [Not Recovered/Not Resolved]
  - Muscle atrophy [Not Recovered/Not Resolved]
  - Myalgia [Not Recovered/Not Resolved]
  - Chronic fatigue syndrome [Not Recovered/Not Resolved]

NARRATIVE: CASE EVENT DATE: 20220201
